FAERS Safety Report 8094254-0 (Version None)
Quarter: 2012Q1

REPORT INFORMATION
  Report Type: 
  Country: None (occurrence: None)
  Receive Date: 20120131
  Receipt Date: 20120124
  Transmission Date: 20120608
  Serious: Yes (Other)
  Sender: FDA-Public Use
  Company Number: US-PFIZER INC-2012020425

PATIENT
  Sex: Female

DRUGS (5)
  1. LYRICA [Suspect]
     Indication: FIBROMYALGIA
     Dosage: 25 MG, 2X/DAY
  2. LYRICA [Interacting]
     Indication: OSTEOARTHRITIS
  3. KLONOPIN [Interacting]
     Indication: SLEEP DISORDER
     Dosage: UNK
  4. MOBIC [Interacting]
     Dosage: UNK
  5. AMBIEN [Interacting]
     Indication: SLEEP DISORDER
     Dosage: UNK

REACTIONS (6)
  - RESTLESSNESS [None]
  - ANXIETY [None]
  - DRUG INTERACTION [None]
  - DRUG INEFFECTIVE [None]
  - LOSS OF CONSCIOUSNESS [None]
  - INSOMNIA [None]
